FAERS Safety Report 12073002 (Version 1)
Quarter: 2016Q1

REPORT INFORMATION
  Report Type: Spontaneous
  Country: US (occurrence: None)
  Receive Date: 20160211
  Receipt Date: 20160211
  Transmission Date: 20160526
  Serious: Yes (Other)
  Sender: FDA-Public Use
  Company Number: None

PATIENT
  Age: 82 Year
  Sex: Male
  Weight: 70.31 kg

DRUGS (1)
  1. CIPROFLOXACIN HCL AUROBINDO PHARM [Suspect]
     Active Substance: CIPROFLOXACIN HYDROCHLORIDE
     Indication: URINARY TRACT INFECTION
     Route: 048
     Dates: start: 20151228, end: 20160107

REACTIONS (2)
  - Muscle strain [None]
  - Muscle injury [None]

NARRATIVE: CASE EVENT DATE: 20160106
